FAERS Safety Report 13437161 (Version 1)
Quarter: 2017Q2

REPORT INFORMATION
  Report Type: Spontaneous
  Country: US (occurrence: US)
  Receive Date: 20170413
  Receipt Date: 20170413
  Transmission Date: 20170830
  Serious: No
  Sender: FDA-Public Use
  Company Number: US-SA-2016SA166385

PATIENT
  Age: 70 Year
  Sex: Female
  Weight: 76 kg

DRUGS (1)
  1. ALLEGRA D-12 HOUR [Suspect]
     Active Substance: FEXOFENADINE HYDROCHLORIDE\PSEUDOEPHEDRINE HYDROCHLORIDE
     Dosage: 1 TABLET EVENING
     Route: 048
     Dates: start: 20160109, end: 20160109

REACTIONS (9)
  - Feeling cold [Unknown]
  - Feeling hot [Unknown]
  - Fear of death [Unknown]
  - Heart rate increased [Unknown]
  - Restless legs syndrome [Unknown]
  - Insomnia [Unknown]
  - Feeling abnormal [Unknown]
  - Malaise [Unknown]
  - Fear [Unknown]

NARRATIVE: CASE EVENT DATE: 20160109
